FAERS Safety Report 13433077 (Version 1)
Quarter: 2017Q2

REPORT INFORMATION
  Report Type: Spontaneous
  Country: US (occurrence: US)
  Receive Date: 20170412
  Receipt Date: 20170412
  Transmission Date: 20170830
  Serious: Yes (Hospitalization, Other)
  Sender: FDA-Public Use
  Company Number: US-PFIZER INC-2015050802

PATIENT
  Age: 9 Year
  Sex: Male

DRUGS (1)
  1. CLINDAMYCIN. [Suspect]
     Active Substance: CLINDAMYCIN
     Indication: CELLULITIS
     Dosage: UNK

REACTIONS (5)
  - Hypotension [Unknown]
  - Toxic shock syndrome [Unknown]
  - Acute generalised exanthematous pustulosis [Recovered/Resolved]
  - Anaemia [Unknown]
  - Hypoalbuminaemia [Unknown]
